FAERS Safety Report 16241492 (Version 3)
Quarter: 2023Q2

REPORT INFORMATION
  Report Type: Spontaneous
  Country: NL (occurrence: NL)
  Receive Date: 20190426
  Receipt Date: 20230414
  Transmission Date: 20230722
  Serious: Yes (Death, Disabling, Other)
  Sender: FDA-Public Use
  Company Number: NL-AUROBINDO-AUR-APL-2019-022482

PATIENT
  Age: 29 Year
  Sex: Female

DRUGS (1)
  1. CLOZAPINE [Suspect]
     Active Substance: CLOZAPINE
     Indication: Schizophrenia
     Dosage: UNK
     Route: 065
     Dates: start: 2013

REACTIONS (5)
  - Diarrhoea [Fatal]
  - Vomiting [Fatal]
  - Myocarditis [Fatal]
  - Gastroenteritis viral [Fatal]
  - Cardiac failure [Fatal]

NARRATIVE: CASE EVENT DATE: 20130101
